FAERS Safety Report 21485550 (Version 3)
Quarter: 2022Q4

REPORT INFORMATION
  Report Type: Spontaneous
  Country: US (occurrence: US)
  Receive Date: 20221020
  Receipt Date: 20221215
  Transmission Date: 20230113
  Serious: Yes (Hospitalization, Other)
  Sender: FDA-Public Use
  Company Number: US-PROPHARMA-501

PATIENT
  Sex: Female

DRUGS (2)
  1. AYVAKIT [Suspect]
     Active Substance: AVAPRITINIB
     Indication: Systemic mastocytosis
     Route: 048
     Dates: start: 20211207
  2. AYVAKIT [Suspect]
     Active Substance: AVAPRITINIB
     Route: 065
     Dates: start: 20211207

REACTIONS (10)
  - Hypersensitivity [Unknown]
  - Erythema [Unknown]
  - Dyspnoea [Unknown]
  - COVID-19 [Unknown]
  - Eye swelling [Unknown]
  - Skin discolouration [Unknown]
  - Lip swelling [Unknown]
  - Swelling [Unknown]
  - Hair colour changes [Unknown]
  - Depression [Recovering/Resolving]
